FAERS Safety Report 12499940 (Version 1)
Quarter: 2016Q2

REPORT INFORMATION
  Report Type: Spontaneous
  Country: US (occurrence: US)
  Receive Date: 20160627
  Receipt Date: 20160627
  Transmission Date: 20160815
  Serious: Yes (Other)
  Sender: FDA-Public Use
  Company Number: US-SA-2016SA116837

PATIENT
  Age: 37 Year
  Sex: Female

DRUGS (7)
  1. BUPROPION. [Concomitant]
     Active Substance: BUPROPION
  2. VITAMIN C [Concomitant]
     Active Substance: ASCORBIC ACID
  3. MODAFINIL. [Concomitant]
     Active Substance: MODAFINIL
  4. AUBAGIO [Suspect]
     Active Substance: TERIFLUNOMIDE
     Indication: MULTIPLE SCLEROSIS
     Route: 048
     Dates: start: 201508
  5. ESCITALOPRAM [Concomitant]
     Active Substance: ESCITALOPRAM OXALATE
  6. TIZANIDINE. [Concomitant]
     Active Substance: TIZANIDINE
  7. VITAMIN D3 [Concomitant]
     Active Substance: CHOLECALCIFEROL

REACTIONS (3)
  - Balance disorder [Not Recovered/Not Resolved]
  - Wheelchair user [Unknown]
  - Fall [Unknown]

NARRATIVE: CASE EVENT DATE: 201605
